FAERS Safety Report 9908334 (Version 1)
Quarter: 2014Q1

REPORT INFORMATION
  Report Type: Report from Study
  Country: CA (occurrence: CA)
  Receive Date: 20140219
  Receipt Date: 20140219
  Transmission Date: 20141002
  Serious: Yes (Hospitalization)
  Sender: FDA-Public Use
  Company Number: CA-JNJFOC-20140208034

PATIENT
  Sex: Female
  Weight: 68 kg

DRUGS (3)
  1. REMICADE [Suspect]
     Indication: CROHN^S DISEASE
     Route: 042
     Dates: start: 20081016, end: 20131008
  2. BIRTH CONTROL PILLS [Concomitant]
     Route: 048
  3. IMURAN [Concomitant]
     Route: 042

REACTIONS (1)
  - Ascites [Unknown]
